FAERS Safety Report 5476139-9 (Version None)
Quarter: 2007Q4

REPORT INFORMATION
  Report Type: 
  Country: None (occurrence: None)
  Receive Date: 20071003
  Receipt Date: 20070924
  Transmission Date: 20080405
  Serious: Yes (Death)
  Sender: FDA-Public Use
  Company Number: AU-JNJFOC-20070703385

PATIENT
  Sex: Female
  Weight: 71.7 kg

DRUGS (2)
  1. CAELYX [Suspect]
     Dosage: 2ND INFUSION.
     Route: 042
  2. CAELYX [Suspect]
     Indication: NEOPLASM MALIGNANT
     Dosage: 1ST INFUSION
     Route: 042

REACTIONS (2)
  - BREAST CANCER [None]
  - BREAST DISCHARGE [None]
